FAERS Safety Report 20678701 (Version 1)
Quarter: 2022Q2

REPORT INFORMATION
  Report Type: Spontaneous
  Country: US (occurrence: US)
  Receive Date: 20220406
  Receipt Date: 20220406
  Transmission Date: 20220721
  Serious: Yes (Hospitalization)
  Sender: FDA-Public Use
  Company Number: US-PFIZER INC-202200482711

PATIENT
  Age: 73 Year
  Sex: Female
  Weight: 85.28 kg

DRUGS (1)
  1. RAPAMUNE [Suspect]
     Active Substance: SIROLIMUS
     Indication: Renal transplant
     Dosage: 2 MG, 1X/DAY
     Route: 048

REACTIONS (1)
  - Localised infection [Recovering/Resolving]
